FAERS Safety Report 13139262 (Version 1)
Quarter: 2017Q1

REPORT INFORMATION
  Report Type: Spontaneous
  Country: IE (occurrence: IE)
  Receive Date: 20170123
  Receipt Date: 20170123
  Transmission Date: 20170428
  Serious: Yes (Other)
  Sender: FDA-Public Use
  Company Number: IE-MYLANLABS-2017M1002355

PATIENT

DRUGS (7)
  1. CICLOSPORIN [Suspect]
     Active Substance: CYCLOSPORINE
     Indication: PYODERMA GANGRENOSUM
     Dosage: 3 MG KG-1 PER DAY
     Route: 065
  2. CICLOSPORIN [Suspect]
     Active Substance: CYCLOSPORINE
     Dosage: BELOW 1 MG KG-1 PER DAY
     Route: 065
  3. CICLOSPORIN [Suspect]
     Active Substance: CYCLOSPORINE
     Dosage: INCREASED DOSE
     Route: 065
  4. CICLOSPORIN [Suspect]
     Active Substance: CYCLOSPORINE
     Dosage: 1 MG KG-1 PER DAY
     Route: 065
  5. MINOCYCLINE [Suspect]
     Active Substance: MINOCYCLINE\MINOCYCLINE HYDROCHLORIDE
     Indication: PYODERMA GANGRENOSUM
     Dosage: 100 MG DAILY
     Route: 065
  6. PREDNISOLONE. [Suspect]
     Active Substance: PREDNISOLONE
     Indication: PYODERMA GANGRENOSUM
     Dosage: 0.6MGKGE-1 PER DAY
     Route: 065
  7. PREDNISOLONE. [Suspect]
     Active Substance: PREDNISOLONE
     Dosage: 7.5MG PER DAY
     Route: 065

REACTIONS (3)
  - Adrenal suppression [Unknown]
  - Pulmonary embolism [Unknown]
  - Renal impairment [Unknown]
